FAERS Safety Report 17437165 (Version 1)
Quarter: 2020Q1

REPORT INFORMATION
  Report Type: Spontaneous
  Country: CA (occurrence: CA)
  Receive Date: 20200219
  Receipt Date: 20200219
  Transmission Date: 20200409
  Serious: Yes (Other)
  Sender: FDA-Public Use
  Company Number: CA-ASTRAZENECA-2020SE21913

PATIENT
  Age: 52 Year
  Sex: Female

DRUGS (4)
  1. AFINITOR [Concomitant]
     Active Substance: EVEROLIMUS
  2. EXEMESTANE. [Concomitant]
     Active Substance: EXEMESTANE
  3. FASLODEX [Suspect]
     Active Substance: FULVESTRANT
     Route: 030
  4. IBRANCE [Suspect]
     Active Substance: PALBOCICLIB
     Route: 048
     Dates: start: 20180717

REACTIONS (4)
  - Malignant neoplasm progression [Unknown]
  - Mouth ulceration [Unknown]
  - Photopsia [Unknown]
  - Dental caries [Unknown]

NARRATIVE: CASE EVENT DATE: 20200129
